FAERS Safety Report 8257455-4 (Version None)
Quarter: 2012Q2

REPORT INFORMATION
  Report Type: 
  Country: None (occurrence: None)
  Receive Date: 20120403
  Receipt Date: 20120321
  Transmission Date: 20120825
  Serious: Yes (Hospitalization)
  Sender: FDA-Public Use
  Company Number: US-ROCHE-1051083

PATIENT
  Age: 46 Year
  Sex: Female
  Weight: 109.4 kg

DRUGS (5)
  1. VALTREX [Concomitant]
     Route: 048
  2. VISMODEGIB [Suspect]
     Indication: MULTIPLE MYELOMA
     Dosage: LAST DOSE PRIOR TO SAE ON 05/MAR/2012
     Route: 048
     Dates: start: 20120201
  3. BACTRIM [Concomitant]
     Route: 048
  4. GABAPENTIN [Concomitant]
     Route: 048
  5. POTASSIUM CHLORIDE [Concomitant]
     Route: 048

REACTIONS (1)
  - HYPONATRAEMIA [None]
